FAERS Safety Report 8193276-9 (Version None)
Quarter: 2012Q1

REPORT INFORMATION
  Report Type: 
  Country: None (occurrence: None)
  Receive Date: 20120308
  Receipt Date: 20120228
  Transmission Date: 20120608
  Serious: Yes (Other)
  Sender: FDA-Public Use
  Company Number: US-JNJFOC-20120300301

PATIENT
  Sex: Female
  Weight: 72.58 kg

DRUGS (1)
  1. DURAGESIC-100 [Suspect]
     Indication: BACK PAIN
     Route: 062
     Dates: start: 20100101

REACTIONS (7)
  - PRODUCT QUALITY ISSUE [None]
  - WEIGHT INCREASED [None]
  - ARTHRALGIA [None]
  - KNEE ARTHROPLASTY [None]
  - ADVERSE EVENT [None]
  - DRUG DOSE OMISSION [None]
  - BACK PAIN [None]
